FAERS Safety Report 25770743 (Version 1)
Quarter: 2025Q3

REPORT INFORMATION
  Report Type: Spontaneous
  Country: US (occurrence: US)
  Receive Date: 20250908
  Receipt Date: 20250908
  Transmission Date: 20251020
  Serious: No
  Sender: AIMMUNE
  Company Number: US-AIMMUNE THERAPEUTICS, INC.-2025AIMT00759

PATIENT

DRUGS (4)
  1. ZENPEP [Suspect]
     Active Substance: PANCRELIPASE AMYLASE\PANCRELIPASE LIPASE\PANCRELIPASE PROTEASE
     Indication: Pancreatitis chronic
     Route: 048
  2. ZENPEP [Suspect]
     Active Substance: PANCRELIPASE AMYLASE\PANCRELIPASE LIPASE\PANCRELIPASE PROTEASE
     Indication: Pancreatic enzymes decreased
     Route: 048
  3. PANCREASE MT [Concomitant]
     Active Substance: PANCRELIPASE
     Indication: Pancreatitis chronic
  4. PANCREASE MT [Concomitant]
     Active Substance: PANCRELIPASE
     Indication: Pancreatic enzymes decreased

REACTIONS (1)
  - Inability to afford medication [Not Recovered/Not Resolved]
